FAERS Safety Report 8850603 (Version 2)
Quarter: 2012Q4

REPORT INFORMATION
  Report Type: 
  Country: US (occurrence: US)
  Receive Date: 20121019
  Receipt Date: 20121227
  Transmission Date: 20130627
  Serious: No
  Sender: FDA-Public Use
  Company Number: US-ASTRAZENECA-2012SE79468

PATIENT
  Age: 67 Year
  Sex: Male

DRUGS (6)
  1. CRESTOR [Suspect]
     Route: 048
  2. ATENOLOL [Suspect]
     Route: 048
  3. ASPIRIN [Concomitant]
  4. CHLORTHALIDONE [Concomitant]
  5. GLIPIZIDE [Concomitant]
  6. METFORMIN [Concomitant]

REACTIONS (9)
  - Diabetes mellitus [Unknown]
  - Hypertension [Unknown]
  - Pneumonia [Unknown]
  - Memory impairment [Unknown]
  - Blood cholesterol increased [Unknown]
  - Decreased appetite [None]
  - Abdominal pain upper [None]
  - Gastric disorder [None]
  - Hiatus hernia [Unknown]
